FAERS Safety Report 5420479-6 (Version None)
Quarter: 2007Q3

REPORT INFORMATION
  Report Type: 
  Country: None (occurrence: None)
  Receive Date: 20070821
  Receipt Date: 20070814
  Transmission Date: 20080115
  Serious: Yes (Hospitalization, Other)
  Sender: FDA-Public Use
  Company Number: PHEH2007US07977

PATIENT
  Sex: Female

DRUGS (27)
  1. SORAFENIB [Concomitant]
     Indication: RENAL CANCER METASTATIC
     Dosage: 400 MG, BID
     Dates: start: 20070502, end: 20070522
  2. ZOMETA [Suspect]
     Indication: METASTASES TO BONE
     Dosage: 3-4 MG MONTHLY
     Dates: start: 20000211, end: 20070518
  3. MILK OF MAGNESIA [Concomitant]
     Dosage: UNK, PRN
  4. SENNA [Concomitant]
     Dosage: BID, PRN
  5. TYLENOL EXTRA-STRENGTH [Concomitant]
     Dosage: UNK, PRN
  6. OXYCODONE HCL [Concomitant]
     Indication: PAIN
     Dosage: 5 MG, PRN
  7. VICODIN [Concomitant]
  8. FERROUS SULFATE TAB [Concomitant]
     Dosage: 325 MG, UNK
  9. CALCITRIOL [Concomitant]
     Dosage: 0.5 UNK, UNK
  10. CALCIUM CARBONATE [Concomitant]
     Dosage: 1500 MG WITH MEALS AND AT BEDTIME
  11. DOCUSATE [Concomitant]
  12. NEPHRO-VITE [Concomitant]
     Dates: start: 20070101
  13. AMBIEN [Concomitant]
     Indication: INSOMNIA
     Dosage: 5 MG, PRN
  14. NPH INSULIN [Concomitant]
     Dosage: 20 U, BID
  15. INSULIN ASPART [Concomitant]
     Dosage: 3 U WITH BREAKFAST, LUNCH AND DINNER
  16. LABETALOL HCL [Concomitant]
     Indication: HYPERTENSION
     Dosage: 200 MG, QD
     Dates: end: 20070501
  17. ZOCOR [Concomitant]
     Indication: HYPERLIPIDAEMIA
     Dosage: 80 MG, QD
     Dates: end: 20070501
  18. LISINOPRIL [Concomitant]
     Indication: HYPERTENSION
     Dosage: 5 MG, QD
     Dates: end: 20070501
  19. TICLID [Concomitant]
     Indication: CEREBROVASCULAR ACCIDENT
     Dosage: 250 MG, BID
     Dates: end: 20070501
  20. IRON [Concomitant]
     Dosage: 300 MG, BID
  21. STARLIX [Concomitant]
     Dosage: 60 MG, TID
  22. PROTONIX [Concomitant]
     Dosage: 40 MG, QD
  23. GLYBURIDE [Concomitant]
     Dosage: 5 MG, BID
  24. GLYBURIDE [Concomitant]
     Dosage: 2.5 MG, QD
  25. SENOKOT [Concomitant]
     Dosage: 8.5 MG, QD
  26. ACETAMINOPHEN [Concomitant]
     Dosage: 325 MG, PRN
  27. GLIPIZIDE [Concomitant]
     Dosage: 5 MG, BID

REACTIONS (50)
  - ANAEMIA [None]
  - ANOREXIA [None]
  - AORTIC VALVE INCOMPETENCE [None]
  - ARTHRALGIA [None]
  - BACK PAIN [None]
  - BIOPSY BRAIN NORMAL [None]
  - BLOOD ALBUMIN DECREASED [None]
  - BLOOD CALCIUM DECREASED [None]
  - BLOOD CHLORIDE INCREASED [None]
  - BLOOD CREATININE INCREASED [None]
  - BLOOD PARATHYROID HORMONE INCREASED [None]
  - BLOOD SODIUM DECREASED [None]
  - BLOOD UREA INCREASED [None]
  - BRAIN MASS [None]
  - CARBON DIOXIDE DECREASED [None]
  - CARDIAC ENZYMES INCREASED [None]
  - CATHETER RELATED INFECTION [None]
  - CONSTIPATION [None]
  - COUGH [None]
  - CRANIOTOMY [None]
  - DIARRHOEA [None]
  - DIASTOLIC DYSFUNCTION [None]
  - DYSPHAGIA [None]
  - FATIGUE [None]
  - GLOMERULAR FILTRATION RATE DECREASED [None]
  - HAEMODIALYSIS [None]
  - HAEMOGLOBIN DECREASED [None]
  - HEMIANOPIA [None]
  - HIATUS HERNIA [None]
  - HYPERKALAEMIA [None]
  - HYPOGLYCAEMIA [None]
  - HYPOTENSION [None]
  - INSOMNIA [None]
  - LOSS OF CONSCIOUSNESS [None]
  - LYMPHADENOPATHY [None]
  - MALIGNANT NEOPLASM PROGRESSION [None]
  - MENTAL STATUS CHANGES [None]
  - METABOLIC ACIDOSIS [None]
  - MYOCARDIAL ISCHAEMIA [None]
  - NAUSEA [None]
  - OEDEMA PERIPHERAL [None]
  - PAIN [None]
  - RENAL FAILURE ACUTE [None]
  - RHABDOMYOLYSIS [None]
  - SINUS TACHYCARDIA [None]
  - SUBARACHNOID HAEMORRHAGE [None]
  - TENDERNESS [None]
  - VISUAL FIELD DEFECT [None]
  - VOMITING [None]
  - WEIGHT DECREASED [None]
